FAERS Safety Report 19446807 (Version 2)
Quarter: 2021Q3

REPORT INFORMATION
  Report Type: Spontaneous
  Country: FR (occurrence: FR)
  Receive Date: 20210622
  Receipt Date: 20210701
  Transmission Date: 20211014
  Serious: Yes (Life-Threatening, Hospitalization, Other)
  Sender: FDA-Public Use
  Company Number: FR-AUROBINDO-AUR-APL-2021-026453

PATIENT
  Age: 14 Year
  Sex: Female

DRUGS (1)
  1. PARACETAMOL [Suspect]
     Active Substance: ACETAMINOPHEN
     Indication: PRODUCT USED FOR UNKNOWN INDICATION
     Dosage: 100 GRAM IN TOTAL
     Route: 065

REACTIONS (5)
  - Neurological decompensation [Unknown]
  - Overdose [Unknown]
  - Toxicity to various agents [Unknown]
  - Blood creatinine decreased [Unknown]
  - Vomiting [Unknown]
